FAERS Safety Report 6029649-X (Version None)
Quarter: 2009Q1

REPORT INFORMATION
  Report Type: 
  Country: None (occurrence: None)
  Receive Date: 20090107
  Receipt Date: 20081204
  Transmission Date: 20090719
  Serious: No
  Sender: FDA-Public Use
  Company Number: US-ABBOTT-08P-163-0437615-00

PATIENT
  Sex: Male
  Weight: 68.1 kg

DRUGS (10)
  1. VICODIN ES [Suspect]
     Indication: HEADACHE
     Route: 048
     Dates: start: 20070301, end: 20080206
  2. VICODIN ES [Suspect]
     Indication: PAIN
  3. VICODIN ES [Suspect]
     Indication: HEAD INJURY
  4. DILANTIN [Concomitant]
     Indication: EPILEPSY
     Route: 048
     Dates: start: 19450101
  5. DILANTIN [Concomitant]
  6. ASPIRIN [Concomitant]
     Indication: DRUG USE FOR UNKNOWN INDICATION
     Route: 048
  7. ASPIRIN [Concomitant]
  8. IBUPROFEN TABLETS [Concomitant]
     Indication: DRUG USE FOR UNKNOWN INDICATION
  9. IBUPROFEN TABLETS [Concomitant]
  10. MULTI-VITAMINS [Concomitant]
     Indication: DRUG USE FOR UNKNOWN INDICATION

REACTIONS (10)
  - CONSTIPATION [None]
  - CONTUSION [None]
  - DRUG INEFFECTIVE [None]
  - LOCALISED INFECTION [None]
  - LUNG DISORDER [None]
  - NASOPHARYNGITIS [None]
  - PAIN [None]
  - POLLAKIURIA [None]
  - RASH [None]
  - SKIN DISCOLOURATION [None]
